FAERS Safety Report 16753832 (Version 1)
Quarter: 2019Q3

REPORT INFORMATION
  Report Type: Spontaneous
  Country: US (occurrence: US)
  Receive Date: 20190829
  Receipt Date: 20190829
  Transmission Date: 20191005
  Serious: Yes (Other)
  Sender: FDA-Public Use
  Company Number: US-ROCHE-2381949

PATIENT
  Age: 91 Year
  Sex: Male
  Weight: 66.9 kg

DRUGS (4)
  1. TYLENOL [Concomitant]
     Active Substance: ACETAMINOPHEN
     Route: 065
  2. CATHFLO ACTIVASE [Suspect]
     Active Substance: ALTEPLASE
     Indication: CEREBROVASCULAR ACCIDENT
     Dosage: 6ML/MIN ON BOLUS
     Route: 040
     Dates: start: 20190813
  3. ASPIRIN [ACETYLSALICYLIC ACID] [Concomitant]
     Active Substance: ASPIRIN
     Route: 065
  4. CATHFLO ACTIVASE [Suspect]
     Active Substance: ALTEPLASE
     Dosage: DRIP WAS 55MG
     Route: 041
     Dates: start: 20190813

REACTIONS (3)
  - Haemorrhage [Recovering/Resolving]
  - Altered state of consciousness [Unknown]
  - Lethargy [Unknown]

NARRATIVE: CASE EVENT DATE: 20190813
